FAERS Safety Report 4285242-0 (Version None)
Quarter: 2004Q1

REPORT INFORMATION
  Report Type: 
  Country: None (occurrence: None)
  Receive Date: 20040203
  Receipt Date: 20040203
  Transmission Date: 20041129
  Serious: Yes (Life-Threatening, Hospitalization)
  Sender: FDA-Public Use
  Company Number: None

PATIENT
  Sex: Female

DRUGS (10)
  1. HEPARIN [Suspect]
     Indication: VENTRICULAR SEPTAL DEFECT ACQUIRED
  2. PREDNISONE [Concomitant]
  3. METOPROLOL [Concomitant]
  4. FUROSEMIDE [Concomitant]
  5. POTASSIUM CHLORIDE [Concomitant]
  6. PHYTONADIONE [Concomitant]
  7. INSULIN [Concomitant]
  8. ENALAPRIL [Concomitant]
  9. METOLAZONE [Concomitant]
  10. LANSOPRAZOLE [Concomitant]

REACTIONS (3)
  - DEEP VEIN THROMBOSIS [None]
  - DISSEMINATED INTRAVASCULAR COAGULATION [None]
  - HEPARIN-INDUCED THROMBOCYTOPENIA [None]
